FAERS Safety Report 6071687-5 (Version None)
Quarter: 2009Q1

REPORT INFORMATION
  Report Type: 
  Country: None (occurrence: None)
  Receive Date: 20090210
  Receipt Date: 20090205
  Transmission Date: 20090719
  Serious: Yes (Disabling)
  Sender: FDA-Public Use
  Company Number: FR-BRISTOL-MYERS SQUIBB COMPANY-14496228

PATIENT
  Age: 67 Year
  Sex: Female

DRUGS (9)
  1. TAXOL [Suspect]
     Indication: BREAST CANCER METASTATIC
     Dates: start: 20080301
  2. AVASTIN [Suspect]
     Indication: BREAST CANCER METASTATIC
  3. INIPOMP [Concomitant]
  4. LASILIX [Concomitant]
  5. COVERSYL [Concomitant]
  6. CARDENSIEL [Concomitant]
  7. EFFEXOR [Concomitant]
  8. XANAX [Concomitant]
  9. URBANYL [Concomitant]

REACTIONS (2)
  - LACRIMATION INCREASED [None]
  - VISUAL ACUITY REDUCED [None]
